FAERS Safety Report 7091494-4 (Version None)
Quarter: 2010Q4

REPORT INFORMATION
  Report Type: 
  Country: None (occurrence: None)
  Receive Date: 20101109
  Receipt Date: 20101103
  Transmission Date: 20110411
  Serious: Yes (Other)
  Sender: FDA-Public Use
  Company Number: US-PFIZER INC-2010140595

PATIENT
  Sex: Female
  Weight: 73 kg

DRUGS (5)
  1. CELEBREX [Suspect]
     Dosage: UNK
  2. NIASPAN [Suspect]
     Indication: LOW DENSITY LIPOPROTEIN INCREASED
     Dosage: 500 MG, AT BEDTIME
     Route: 065
     Dates: start: 20100909, end: 20100916
  3. NIASPAN [Suspect]
     Dosage: 1000 MG, AT BEDTIME
     Dates: start: 20100916
  4. LEVOTHYROXINE [Concomitant]
     Indication: HYPOTHYROIDISM
     Dosage: UNK
  5. ALENDRONATE SODIUM [Concomitant]
     Indication: OSTEOPOROSIS
     Dosage: UNK

REACTIONS (6)
  - BLOOD PRESSURE DECREASED [None]
  - CHEST PAIN [None]
  - HEADACHE [None]
  - HEART RATE DECREASED [None]
  - HYPERSENSITIVITY [None]
  - URTICARIA [None]
